FAERS Safety Report 12671991 (Version 1)
Quarter: 2016Q3

REPORT INFORMATION
  Report Type: Spontaneous
  Country: US (occurrence: None)
  Receive Date: 20160819
  Receipt Date: 20160819
  Transmission Date: 20161109
  Serious: No
  Sender: FDA-Public Use
  Company Number: None

PATIENT
  Age: 70 Year
  Sex: Male

DRUGS (1)
  1. TAMSULOSIN 0.4MG ZYDUS [Suspect]
     Active Substance: TAMSULOSIN
     Indication: BENIGN PROSTATIC HYPERPLASIA
     Route: 048

REACTIONS (4)
  - Product identification number issue [None]
  - Abdominal pain [None]
  - Product commingling [None]
  - Flatulence [None]

NARRATIVE: CASE EVENT DATE: 20160516
